FAERS Safety Report 6290871-9 (Version None)
Quarter: 2009Q3

REPORT INFORMATION
  Report Type: 
  Country: None (occurrence: None)
  Receive Date: 20090728
  Receipt Date: 20090728
  Transmission Date: 20100115
  Serious: Yes (Hospitalization)
  Sender: FDA-Public Use
  Company Number: None

PATIENT
  Sex: Female
  Weight: 54.5 kg

DRUGS (1)
  1. DAUNORUBICIN HCL [Suspect]
     Dates: start: 20090707

REACTIONS (1)
  - FEBRILE NEUTROPENIA [None]
